FAERS Safety Report 16874810 (Version 2)
Quarter: 2019Q4

REPORT INFORMATION
  Report Type: Spontaneous
  Country: DE (occurrence: DE)
  Receive Date: 20191001
  Receipt Date: 20191011
  Transmission Date: 20200122
  Serious: Yes (Other)
  Sender: FDA-Public Use
  Company Number: DE-BAUSCH-BL-2019-054743

PATIENT
  Age: 77 Year
  Sex: Male

DRUGS (1)
  1. DEXAGEL [Suspect]
     Active Substance: DEXAMETHASONE SODIUM PHOSPHATE
     Indication: POSTOPERATIVE CARE
     Dosage: APPLICATION OF DEXAGEL 3-4 TIMES PER DAY
     Route: 065
     Dates: start: 2019

REACTIONS (2)
  - Abdominal pain upper [Not Recovered/Not Resolved]
  - Gastric ulcer [Unknown]

NARRATIVE: CASE EVENT DATE: 2019
